FAERS Safety Report 5549514-1 (Version None)
Quarter: 2007Q4

REPORT INFORMATION
  Report Type: 
  Country: None (occurrence: None)
  Receive Date: 20071212
  Receipt Date: 20071205
  Transmission Date: 20080405
  Serious: Yes (Other)
  Sender: FDA-Public Use
  Company Number: PHBS2007JP20559

PATIENT
  Age: 77 Year
  Sex: Female

DRUGS (3)
  1. ZOMETA [Suspect]
     Indication: METASTASES TO BONE
     Dosage: 4 MG, UNK
     Route: 042
     Dates: start: 20061109, end: 20070626
  2. HERCEPTIN [Concomitant]
     Route: 042
     Dates: start: 20061108
  3. TAXOL [Concomitant]
     Route: 042
     Dates: start: 20061109

REACTIONS (2)
  - DENTAL TREATMENT [None]
  - OSTEONECROSIS [None]
